FAERS Safety Report 9127299 (Version 1)
Quarter: 2013Q1

REPORT INFORMATION
  Report Type: Spontaneous
  Country: US (occurrence: US)
  Receive Date: 20130228
  Receipt Date: 20130228
  Transmission Date: 20140127
  Serious: No
  Sender: FDA-Public Use
  Company Number: US-GLAXOSMITHKLINE-A0967387A

PATIENT
  Age: 25 Year
  Sex: Female
  Weight: 61.8 kg

DRUGS (1)
  1. LAMOTRIGINE [Suspect]
     Indication: CONVULSION
     Dosage: 100MG TWICE PER DAY
     Route: 048
     Dates: start: 20110428

REACTIONS (4)
  - Insomnia [Unknown]
  - Nausea [Unknown]
  - Hypertension [Unknown]
  - Exposure during pregnancy [Unknown]
